FAERS Safety Report 19709239 (Version 1)
Quarter: 2021Q3

REPORT INFORMATION
  Report Type: Other
  Country: CN (occurrence: CN)
  Receive Date: 20210817
  Receipt Date: 20210817
  Transmission Date: 20211014
  Serious: Yes (Death, Other)
  Sender: FDA-Public Use
  Company Number: CN-ROCHE-1946969

PATIENT
  Age: 72 Year
  Sex: Male
  Weight: 55 kg

DRUGS (2)
  1. AVASTIN [Suspect]
     Active Substance: BEVACIZUMAB
     Route: 041
     Dates: start: 20200918
  2. AVASTIN [Suspect]
     Active Substance: BEVACIZUMAB
     Indication: RECTAL CANCER
     Route: 041
     Dates: start: 20161118, end: 20200617

REACTIONS (12)
  - Hernia [Unknown]
  - Pain in extremity [Recovering/Resolving]
  - Diarrhoea [Unknown]
  - Phlebitis [Recovering/Resolving]
  - Organ failure [Fatal]
  - White blood cell count decreased [Unknown]
  - Chronic obstructive pulmonary disease [Unknown]
  - Ligament sprain [Unknown]
  - Vomiting [Unknown]
  - Vasculitis [Unknown]
  - Memory impairment [Unknown]
  - Gastroenteritis [Unknown]

NARRATIVE: CASE EVENT DATE: 202005
